FAERS Safety Report 10038729 (Version 1)
Quarter: 2014Q1

REPORT INFORMATION
  Report Type: Spontaneous
  Country: US (occurrence: None)
  Receive Date: 20140306
  Receipt Date: 20140306
  Transmission Date: 20141002
  Serious: Yes (Other)
  Sender: FDA-Public Use
  Company Number: 163-21880-13070207

PATIENT
  Age: 65 Year
  Sex: Male

DRUGS (13)
  1. REVLIMID (LENALIDOMIDE) (25 MILLIGRAM, CAPSULES) [Suspect]
     Indication: PLASMA CELL MYELOMA
     Dosage: 21 IN 28 D
     Route: 048
     Dates: start: 20130506
  2. LOSARTAN POTASSIUM [Concomitant]
  3. ASPIRIN (ACETYLSALICYLIC ACID) [Concomitant]
  4. ACYCLOVIR [Concomitant]
  5. PRAVASTATIN [Concomitant]
  6. OMEPRAZOLE [Concomitant]
  7. AMLODIPINE [Concomitant]
  8. CARB LEVO (SINEMET) [Concomitant]
  9. DEXAMETHASONE (DEXAMETHASONE) [Concomitant]
  10. CYCLOPHOSPHAMIDE [Concomitant]
  11. MIRAPEX (PRAMIPEXOLE DIHYDROCHLORIDE) [Concomitant]
  12. TRIAMTERENE AND HYDROCHLOROTHIAZIDE (DYAZIDE) [Concomitant]
  13. OXYCODONE [Concomitant]

REACTIONS (1)
  - Red blood cell count decreased [None]
